FAERS Safety Report 5578941-1 (Version None)
Quarter: 2008Q1

REPORT INFORMATION
  Report Type: 
  Country: None (occurrence: None)
  Receive Date: 20080102
  Receipt Date: 20071220
  Transmission Date: 20080703
  Serious: Yes (Other)
  Sender: FDA-Public Use
  Company Number: GB-ASTRAZENECA-2007GB02623

PATIENT
  Age: 72 Year
  Sex: Female

DRUGS (9)
  1. LIDOCAINE [Suspect]
     Indication: ANAESTHESIA
     Route: 065
     Dates: start: 20070504, end: 20070504
  2. ADRENALINE [Concomitant]
     Dates: start: 20070504, end: 20070504
  3. BETAMETHASONE [Concomitant]
     Indication: POSTOPERATIVE CARE
     Route: 031
     Dates: start: 20070504, end: 20070504
  4. CHLORAMPHENICOL [Concomitant]
     Route: 031
  5. CYCLOPENTOLATE HCL [Concomitant]
     Route: 031
     Dates: start: 20070504, end: 20070504
  6. FLURBIPROFEN SODIUM [Concomitant]
     Route: 031
     Dates: start: 20070504, end: 20070504
  7. NEOMYCIN [Concomitant]
     Indication: POSTOPERATIVE CARE
     Dates: start: 20070504, end: 20070504
  8. PHENYLEPHRINE [Concomitant]
     Route: 031
     Dates: start: 20070504, end: 20070504
  9. POVIDONE IODINE [Concomitant]
     Route: 031
     Dates: start: 20070504, end: 20070504

REACTIONS (1)
  - TOXIC ANTERIOR SEGMENT SYNDROME [None]
